FAERS Safety Report 14049694 (Version 4)
Quarter: 2017Q4

REPORT INFORMATION
  Report Type: Spontaneous
  Country: CH (occurrence: CH)
  Receive Date: 20171005
  Receipt Date: 20171122
  Transmission Date: 20180321
  Serious: Yes (Hospitalization, Other)
  Sender: FDA-Public Use
  Company Number: CH-PFIZER INC-2017420499

PATIENT
  Age: 21 Year
  Sex: Male
  Weight: 69 kg

DRUGS (16)
  1. TARGIN [Concomitant]
     Active Substance: NALOXONE HYDROCHLORIDE\OXYCODONE HYDROCHLORIDE
     Dosage: 5 MG, 2X/DAY (1-0-1-0)
     Dates: start: 20170904
  2. MEROPENEM. [Suspect]
     Active Substance: MEROPENEM
     Dosage: 1 G, 1X/DAY I.V.
     Route: 041
     Dates: start: 20170911, end: 20170912
  3. TAZOBAC [Suspect]
     Active Substance: PIPERACILLIN SODIUM\TAZOBACTAM SODIUM
     Dosage: 4.5 G, 3X/DAY (1-1-1)
     Route: 042
     Dates: start: 20170825, end: 20170911
  4. NOVALGIN [Suspect]
     Active Substance: METAMIZOLE SODIUM
     Dosage: 4 X 40 DROPS/DAY CORRESPONDING TO 4 G, DAILY
     Dates: start: 20170808, end: 20170814
  5. NOVALGIN [Suspect]
     Active Substance: METAMIZOLE SODIUM
     Dosage: 2 G, DAILY
     Dates: start: 20170826, end: 20170830
  6. NOVALGIN [Suspect]
     Active Substance: METAMIZOLE SODIUM
     Dosage: 4 G, DAILY
     Dates: start: 20170821, end: 20170825
  7. FRAGMIN [Concomitant]
     Active Substance: DALTEPARIN SODIUM
     Dosage: 5000 IU, 1X/DAY
     Route: 058
     Dates: end: 201709
  8. PANTOZOL [Suspect]
     Active Substance: PANTOPRAZOLE SODIUM
     Dosage: 40 MG, 1X/DAY (1-0-0)
     Route: 048
     Dates: end: 20170912
  9. ISOTRETINOIN. [Suspect]
     Active Substance: ISOTRETINOIN
     Dosage: 20 MG, 1X/DAY (0-1-0)
     Dates: start: 20170703, end: 20170912
  10. NOVALGIN [Suspect]
     Active Substance: METAMIZOLE SODIUM
     Dosage: 2 G, DAILY
     Dates: start: 20170902, end: 20170910
  11. VITAMIN D3 STREULI [Concomitant]
     Active Substance: CHOLECALCIFEROL
     Dosage: 1000 IU, 1X/DAY (1000IU-0-0)
  12. NOVALGIN [Suspect]
     Active Substance: METAMIZOLE SODIUM
     Dosage: 500 MG, 2X/DAY
     Dates: start: 20170911, end: 20170911
  13. NOVALGIN [Suspect]
     Active Substance: METAMIZOLE SODIUM
     Dosage: 1 G, 1X/DAY
     Dates: start: 20170912, end: 20170912
  14. DAFALGAN [Suspect]
     Active Substance: ACETAMINOPHEN
     Dosage: 500 MG, 4X/DAY (1-1-1-1)
     Dates: start: 20170902, end: 20170912
  15. BUDENOFALK [Concomitant]
     Active Substance: BUDESONIDE
     Indication: CROHN^S DISEASE
     Dosage: 3 MG, 1X/DAY (1-0-0)
     Dates: start: 20170905
  16. ZINK BIOMED [Concomitant]
     Dosage: UNK, 1X/DAY (0-1-0)

REACTIONS (2)
  - Neutropenia [Recovered/Resolved]
  - Thrombocytopenia [Recovered/Resolved]

NARRATIVE: CASE EVENT DATE: 20170911
